FAERS Safety Report 5147828-0 (Version None)
Quarter: 2006Q4

REPORT INFORMATION
  Report Type: 
  Country: None (occurrence: None)
  Receive Date: 20061110
  Receipt Date: 20050928
  Transmission Date: 20070319
  Serious: Yes (Hospitalization, Other)
  Sender: FDA-Public Use
  Company Number: US-BRISTOL-MYERS SQUIBB COMPANY-13124730

PATIENT
  Age: 49 Year
  Sex: Male

DRUGS (9)
  1. BLINDED: ARIPIPRAZOLE [Suspect]
     Indication: BIPOLAR I DISORDER
     Route: 048
     Dates: start: 20050902, end: 20050922
  2. BLINDED: LITHIUM [Suspect]
     Indication: BIPOLAR I DISORDER
     Route: 048
     Dates: start: 20050902, end: 20050922
  3. BLINDED: PLACEBO [Suspect]
     Indication: BIPOLAR I DISORDER
     Route: 048
     Dates: start: 20050902, end: 20050922
  4. ABILIFY [Suspect]
     Route: 048
     Dates: start: 20050901
  5. BUSPAR [Suspect]
     Dates: start: 20051012
  6. KLONOPIN [Suspect]
     Route: 048
     Dates: start: 20050901
  7. DEPAKOTE [Suspect]
     Dates: start: 20051012
  8. SEROQUEL [Suspect]
     Dates: start: 20051012
  9. XANAX [Suspect]
     Dates: start: 20051012

REACTIONS (3)
  - ANXIETY [None]
  - MULTIPLE DRUG OVERDOSE [None]
  - SUICIDE ATTEMPT [None]
